FAERS Safety Report 10260507 (Version 2)
Quarter: 2014Q2

REPORT INFORMATION
  Report Type: Report from Study
  Country: JP (occurrence: JP)
  Receive Date: 20140626
  Receipt Date: 20140630
  Transmission Date: 20141212
  Serious: Yes (Other)
  Sender: FDA-Public Use
  Company Number: JP-UCBSA-2014001847

PATIENT
  Age: 64 Year
  Sex: Female
  Weight: 37 kg

DRUGS (3)
  1. LEVETIRACETAM [Suspect]
     Indication: PARTIAL SEIZURES WITH SECONDARY GENERALISATION
     Dosage: 500 MG, 2X/DAY (BID)
     Route: 048
     Dates: start: 20140219
  2. TEGRETOL [Concomitant]
     Indication: PARTIAL SEIZURES WITH SECONDARY GENERALISATION
     Dosage: 200 MG, ONCE DAILY (QD)
     Route: 048
  3. TEGRETOL [Concomitant]
     Route: 048

REACTIONS (1)
  - Lymphoma [Not Recovered/Not Resolved]
